FAERS Safety Report 5729166-8 (Version None)
Quarter: 2008Q2

REPORT INFORMATION
  Report Type: 
  Country: None (occurrence: None)
  Receive Date: 20080430
  Receipt Date: 20080129
  Transmission Date: 20081010
  Serious: No
  Sender: FDA-Public Use
  Company Number: 2007PV033629

PATIENT
  Age: 67 Year
  Sex: Male
  Weight: 108.8633 kg

DRUGS (6)
  1. SYMLIN [Suspect]
     Indication: TYPE 2 DIABETES MELLITUS
     Dosage: PRN;SC ; 120 MCG;TID;SC
     Route: 058
     Dates: start: 20061010, end: 20060101
  2. SYMLIN [Suspect]
     Indication: TYPE 2 DIABETES MELLITUS
     Dosage: PRN;SC ; 120 MCG;TID;SC
     Route: 058
     Dates: start: 20060101
  3. METFORMIN [Concomitant]
  4. NOVOLOG [Concomitant]
  5. LANTUS [Concomitant]
  6. GINSENG [Concomitant]

REACTIONS (3)
  - DYSGEUSIA [None]
  - WEIGHT INCREASED [None]
  - WRONG DRUG ADMINISTERED [None]
